FAERS Safety Report 6027880-0 (Version None)
Quarter: 2009Q1

REPORT INFORMATION
  Report Type: 
  Country: None (occurrence: None)
  Receive Date: 20090105
  Receipt Date: 20081219
  Transmission Date: 20090719
  Serious: Yes (Hospitalization, Other)
  Sender: FDA-Public Use
  Company Number: BR-PFIZER INC-2007105849

PATIENT

DRUGS (8)
  1. LIPITOR [Suspect]
     Indication: BLOOD TRIGLYCERIDES ABNORMAL
     Dosage: 40 MG, 1/3 TABLET, 1X/DAY
     Route: 048
     Dates: start: 20030101
  2. LIPITOR [Suspect]
     Indication: HYPERCHOLESTEROLAEMIA
  3. ANTIDEPRESSANTS [Suspect]
     Dosage: UNK
  4. PAROXETINE HCL [Concomitant]
     Indication: PANIC DISORDER
  5. CLONAZEPAM [Concomitant]
     Indication: ANXIETY
  6. AAS [Concomitant]
  7. CLOPIDOGREL [Concomitant]
     Dosage: UNK
  8. VIAGRA [Concomitant]
     Dosage: UNK

REACTIONS (8)
  - ARTERIAL OCCLUSIVE DISEASE [None]
  - COMPLICATIONS OF TRANSPLANT SURGERY [None]
  - DEPRESSION [None]
  - HEPATITIS B [None]
  - LIBIDO DISORDER [None]
  - LIVER DISORDER [None]
  - SPIDER NAEVUS [None]
  - VENOUS OCCLUSION [None]
